FAERS Safety Report 19034045 (Version 1)
Quarter: 2021Q1

REPORT INFORMATION
  Report Type: Spontaneous
  Country: US (occurrence: US)
  Receive Date: 20210319
  Receipt Date: 20210319
  Transmission Date: 20210420
  Serious: No
  Sender: FDA-Public Use
  Company Number: US-BRECKENRIDGE PHARMACEUTICAL, INC.-2108227

PATIENT
  Sex: Male

DRUGS (1)
  1. ASENAPINE. [Suspect]
     Active Substance: ASENAPINE
     Route: 060

REACTIONS (4)
  - Product formulation issue [None]
  - Product solubility abnormal [None]
  - Underdose [None]
  - Hypomania [None]
